FAERS Safety Report 4309580-8 (Version None)
Quarter: 2004Q1

REPORT INFORMATION
  Report Type: 
  Country: None (occurrence: None)
  Receive Date: 20040301
  Receipt Date: 20040217
  Transmission Date: 20041129
  Serious: Yes (Other)
  Sender: FDA-Public Use
  Company Number: 2004199584IT

PATIENT
  Age: 69 Year
  Sex: Male

DRUGS (1)
  1. DELTASONE [Suspect]
     Indication: POLYMYALGIA

REACTIONS (8)
  - ACQUIRED HAEMOPHILIA [None]
  - ACUTE ABDOMEN [None]
  - HAEMOGLOBIN DECREASED [None]
  - MUSCLE HAEMORRHAGE [None]
  - OPERATIVE HAEMORRHAGE [None]
  - PERIPHERAL ARTERY ANEURYSM [None]
  - POST PROCEDURAL HAEMORRHAGE [None]
  - WHITE BLOOD CELL COUNT INCREASED [None]
